FAERS Safety Report 6903764-8 (Version None)
Quarter: 2010Q3

REPORT INFORMATION
  Report Type: 
  Country: None (occurrence: None)
  Receive Date: 20100804
  Receipt Date: 20090105
  Transmission Date: 20110219
  Serious: No
  Sender: FDA-Public Use
  Company Number: US-PFIZER INC-2009152432

PATIENT
  Sex: Female
  Weight: 61 kg

DRUGS (6)
  1. LYRICA [Suspect]
     Indication: FIBROMYALGIA
     Dates: start: 20081216, end: 20081216
  2. LYRICA [Suspect]
     Indication: PAIN
  3. CELEBREX [Concomitant]
     Dosage: UNK
  4. NIFEDIPINE [Concomitant]
     Indication: RAYNAUD'S PHENOMENON
     Dosage: UNK
  5. NIFEDIPINE [Concomitant]
     Indication: BLOOD PRESSURE ABNORMAL
  6. CYCLOBENZAPRINE [Concomitant]
     Dosage: UNK

REACTIONS (2)
  - PARAESTHESIA [None]
  - TREMOR [None]
